FAERS Safety Report 9157426 (Version 1)
Quarter: 2013Q1

REPORT INFORMATION
  Report Type: Spontaneous
  Country: FR (occurrence: FR)
  Receive Date: 20130312
  Receipt Date: 20130312
  Transmission Date: 20140127
  Serious: Yes (Hospitalization)
  Sender: FDA-Public Use
  Company Number: FR-SANOFI-AVENTIS-2013SA023704

PATIENT
  Age: 64 Year
  Sex: Female

DRUGS (6)
  1. STILNOX [Suspect]
     Indication: INSOMNIA
     Route: 048
     Dates: start: 20130110
  2. DEPAKOTE [Suspect]
     Indication: DEPRESSION
     Route: 048
     Dates: start: 20130110
  3. CYMBALTA [Suspect]
     Indication: DEPRESSION
     Route: 048
     Dates: start: 20130116, end: 20130131
  4. ATARAX [Suspect]
     Indication: ANXIETY
     Dosage: STRENGTH: 100 MG
     Route: 048
     Dates: start: 20130110
  5. SERESTA [Suspect]
     Indication: ANXIETY
     Dosage: STRENGTH: 150 MG
     Route: 048
     Dates: start: 20130110
  6. MIANSERINE [Suspect]
     Indication: PRODUCT USED FOR UNKNOWN INDICATION
     Route: 048
     Dates: start: 20130110

REACTIONS (2)
  - Erythema [Recovered/Resolved]
  - Pruritus [Recovered/Resolved]
